FAERS Safety Report 9555300 (Version 1)
Quarter: 2013Q3

REPORT INFORMATION
  Report Type: Spontaneous
  Country: US (occurrence: None)
  Receive Date: 20130724
  Receipt Date: 20130724
  Transmission Date: 20140515
  Serious: Yes (Other)
  Sender: FDA-Public Use
  Company Number: PHEH2013US005570

PATIENT
  Age: 56 Year
  Sex: Male
  Weight: 79.4 kg

DRUGS (1)
  1. GILENYA [Suspect]
     Indication: MULTIPLE SCLEROSIS
     Route: 048
     Dates: start: 20130301, end: 20130306

REACTIONS (10)
  - Decreased appetite [None]
  - Fatigue [None]
  - Influenza like illness [None]
  - Weight decreased [None]
  - Malaise [None]
  - Pain [None]
  - Headache [None]
  - Nasal congestion [None]
  - Cough [None]
  - Pyrexia [None]
